FAERS Safety Report 4428105-X (Version None)
Quarter: 2004Q3

REPORT INFORMATION
  Report Type: 
  Country: None (occurrence: None)
  Receive Date: 20040726
  Receipt Date: 20040524
  Transmission Date: 20050211
  Serious: No
  Sender: FDA-Public Use
  Company Number: USA030843391

PATIENT
  Age: 78 Year
  Sex: Female
  Weight: 88 kg

DRUGS (4)
  1. FORTEO [Suspect]
     Indication: OSTEOPOROSIS
     Dosage: 20 UG DAY
     Dates: start: 20030717
  2. ATENOLOL [Concomitant]
  3. NIACALCIN (CALCITONIN SALMON) [Concomitant]
  4. CALCIUM [Concomitant]

REACTIONS (3)
  - DIZZINESS [None]
  - MUSCULOSKELETAL STIFFNESS [None]
  - NAUSEA [None]
